FAERS Safety Report 4613247-6 (Version None)
Quarter: 2005Q1

REPORT INFORMATION
  Report Type: 
  Country: None (occurrence: None)
  Receive Date: 20050315
  Receipt Date: 20050302
  Transmission Date: 20050727
  Serious: Yes (Death, Hospitalization)
  Sender: FDA-Public Use
  Company Number: 211293

PATIENT
  Age: 75 Year
  Sex: Male

DRUGS (5)
  1. RITUXIMAB (RITUXIMAB) CONC FOR SOLUTION FOR INFUSION [Suspect]
     Indication: CHRONIC LYMPHOCYTIC LEUKAEMIA
     Dosage: 500 MG/M2, Q28D, INTRAVENOUS
     Route: 042
     Dates: start: 20040609, end: 20041027
  2. FLUDARABINE PHOSPHATE [Suspect]
     Indication: CHRONIC LYMPHOCYTIC LEUKAEMIA
     Dosage: 25 MG/M2, Q28D, INTRAVENOUS
     Route: 042
     Dates: start: 20040610, end: 20041029
  3. CYCLOPHOSPHAMIDE [Suspect]
     Indication: CHRONIC LYMPHOCYTIC LEUKAEMIA
     Dosage: 250 MG/M2, Q28D, INTRAVENOUS
     Route: 042
     Dates: start: 20040610, end: 20041029
  4. ACYCLOVIR [Concomitant]
  5. SULFAMETHOXAZOLE + TRIMETHOPRIM [Concomitant]

REACTIONS (35)
  - ANAEMIA [None]
  - ANGIOPATHY [None]
  - AORTIC VALVE DISEASE [None]
  - AORTIC VALVE INCOMPETENCE [None]
  - APPENDICEAL MUCOCOELE [None]
  - CARDIAC VALVE VEGETATION [None]
  - CEREBRAL INFARCTION [None]
  - COLON CANCER [None]
  - CORONARY ARTERY EMBOLISM [None]
  - DISEASE PROGRESSION [None]
  - EMBOLIC CEREBRAL INFARCTION [None]
  - EMBOLISM [None]
  - ENDOCARDITIS NONINFECTIVE [None]
  - GENERAL PHYSICAL HEALTH DETERIORATION [None]
  - HEMIANOPIA HOMONYMOUS [None]
  - HEPATIC CYST [None]
  - INFECTION [None]
  - LIVER ABSCESS [None]
  - METASTASES TO LIVER [None]
  - METASTASES TO PERITONEUM [None]
  - METASTATIC NEOPLASM [None]
  - MITRAL VALVE INCOMPETENCE [None]
  - MYOCARDIAL INFARCTION [None]
  - PERICARDIAL EFFUSION [None]
  - PULMONARY HYPERTENSION [None]
  - RENAL DISORDER [None]
  - RENAL INFARCT [None]
  - RENAL VESSEL DISORDER [None]
  - SEPSIS [None]
  - SPLEEN DISORDER [None]
  - SPLENIC INFARCTION [None]
  - THERAPY NON-RESPONDER [None]
  - THROMBOCYTOPENIC PURPURA [None]
  - THROMBOTIC STROKE [None]
  - VISUAL DISTURBANCE [None]
